FAERS Safety Report 8985155 (Version 1)
Quarter: 2012Q4

REPORT INFORMATION
  Report Type: Report from Study
  Country: RU (occurrence: RU)
  Receive Date: 20121224
  Receipt Date: 20121224
  Transmission Date: 20130627
  Serious: Yes (Hospitalization)
  Sender: FDA-Public Use
  Company Number: RU-BRISTOL-MYERS SQUIBB COMPANY-17214040

PATIENT
  Age: 65 Year
  Sex: Female

DRUGS (4)
  1. CISPLATIN FOR INJ [Suspect]
     Indication: METASTATIC GASTRIC CANCER
     Dosage: Last dose:26Nov12
     Route: 041
  2. 5-FLUOROURACIL [Suspect]
     Indication: METASTATIC GASTRIC CANCER
     Dosage: Last dose:26Nov12
     Route: 041
  3. DEXAMETHASONE [Suspect]
  4. LEVOTHYROXINE [Suspect]

REACTIONS (1)
  - Electrolyte imbalance [Recovered/Resolved]
